FAERS Safety Report 7214666-4 (Version None)
Quarter: 2011Q1

REPORT INFORMATION
  Report Type: 
  Country: None (occurrence: None)
  Receive Date: 20110105
  Receipt Date: 20110105
  Transmission Date: 20110831
  Serious: No
  Sender: FDA-Public Use
  Company Number: None

PATIENT
  Age: 57 Year
  Sex: Female

DRUGS (1)
  1. CEFAZOLIN [Suspect]
     Dates: start: 20090204, end: 20090204

REACTIONS (13)
  - ALANINE AMINOTRANSFERASE INCREASED [None]
  - HEPATOTOXICITY [None]
  - VOMITING [None]
  - PYREXIA [None]
  - BLOOD BILIRUBIN INCREASED [None]
  - NAUSEA [None]
  - CHILLS [None]
  - LIVER DISORDER [None]
  - ASPARTATE AMINOTRANSFERASE INCREASED [None]
  - BLOOD ALKALINE PHOSPHATASE INCREASED [None]
  - HEPATITIS ACUTE [None]
  - URINARY TRACT INFECTION [None]
  - WEIGHT DECREASED [None]
